FAERS Safety Report 4808306-9 (Version None)
Quarter: 2005Q4

REPORT INFORMATION
  Report Type: 
  Country: None (occurrence: None)
  Receive Date: 20051021
  Receipt Date: 20040622
  Transmission Date: 20060501
  Serious: No
  Sender: FDA-Public Use
  Company Number: EWC040639798

PATIENT
  Age: 62 Year
  Sex: Female

DRUGS (2)
  1. ZYPREXA [Suspect]
     Indication: PERSECUTORY DELUSION
     Dosage: 15 MG DAY
     Dates: start: 20040301, end: 20040611
  2. ZYPREXA [Suspect]
     Indication: SOMATIC DELUSION
     Dosage: 15 MG DAY
     Dates: start: 20040301, end: 20040611

REACTIONS (1)
  - THROMBOSIS [None]
